FAERS Safety Report 21635602 (Version 2)
Quarter: 2022Q4

REPORT INFORMATION
  Report Type: Spontaneous
  Country: US (occurrence: US)
  Receive Date: 20221123
  Receipt Date: 20221215
  Transmission Date: 20230113
  Serious: No
  Sender: FDA-Public Use
  Company Number: US-NOVOPROD-951109

PATIENT
  Age: 64 Year
  Sex: Female

DRUGS (3)
  1. LEVEMIR [Suspect]
     Active Substance: INSULIN DETEMIR
     Indication: Type 2 diabetes mellitus
     Dosage: 48 IU
     Route: 058
     Dates: start: 2018
  2. NOVOLOG [Suspect]
     Active Substance: INSULIN ASPART
     Indication: Type 2 diabetes mellitus
     Dosage: 18 IU
     Route: 058
     Dates: start: 2018
  3. OZEMPIC [Suspect]
     Active Substance: SEMAGLUTIDE
     Indication: Type 2 diabetes mellitus
     Dosage: 0.5MG
     Route: 058
     Dates: start: 2021

REACTIONS (8)
  - Hunger [Unknown]
  - Insomnia [Unknown]
  - Blood glucose decreased [Unknown]
  - Blood glucose increased [Unknown]
  - Glycosylated haemoglobin increased [Unknown]
  - Injection site bruising [Unknown]
  - Weight increased [Unknown]
  - Wrong technique in device usage process [Unknown]
